FAERS Safety Report 5832521-9 (Version None)
Quarter: 2008Q3

REPORT INFORMATION
  Report Type: 
  Country: None (occurrence: None)
  Receive Date: 20080804
  Receipt Date: 20080730
  Transmission Date: 20090109
  Serious: Yes (Hospitalization)
  Sender: FDA-Public Use
  Company Number: US-BRISTOL-MYERS SQUIBB COMPANY-14279806

PATIENT
  Age: 47 Year
  Sex: Male

DRUGS (7)
  1. CYCLOPHOSPHAMIDE [Suspect]
  2. DOXORUBICIN HCL [Suspect]
  3. VINCRISTINE [Suspect]
  4. DEXAMETHASONE [Suspect]
  5. GRANULOCYTE CSF [Suspect]
  6. THALIDOMIDE [Suspect]
  7. MELPHALAN [Suspect]

REACTIONS (1)
  - GUILLAIN-BARRE SYNDROME [None]
